FAERS Safety Report 11967361 (Version 1)
Quarter: 2016Q1

REPORT INFORMATION
  Report Type: Spontaneous
  Country: FR (occurrence: FR)
  Receive Date: 20160127
  Receipt Date: 20160127
  Transmission Date: 20160526
  Serious: Yes (Hospitalization)
  Sender: FDA-Public Use
  Company Number: FR-SA-2016SA010808

PATIENT
  Age: 86 Year
  Sex: Female

DRUGS (14)
  1. PREVISCAN [Suspect]
     Active Substance: FLUINDIONE
     Indication: ATRIAL FIBRILLATION
     Route: 048
     Dates: start: 2010
  2. ALDACTONE [Concomitant]
     Active Substance: SPIRONOLACTONE
     Route: 065
  3. ALLOPURINOL. [Concomitant]
     Active Substance: ALLOPURINOL
     Route: 065
  4. UVEDOSE [Concomitant]
     Active Substance: CHOLECALCIFEROL
     Route: 065
  5. XYZALL [Suspect]
     Active Substance: LEVOCETIRIZINE DIHYDROCHLORIDE
     Route: 048
  6. DOLIPRANE [Concomitant]
     Active Substance: ACETAMINOPHEN
     Route: 065
  7. FEROGRAD VITAMIN C [Concomitant]
     Route: 065
  8. DETENSIEL [Suspect]
     Active Substance: BISOPROLOL FUMARATE
     Route: 065
  9. SORIATANE [Concomitant]
     Active Substance: ACITRETIN
     Route: 065
  10. TAHOR [Concomitant]
     Active Substance: ATORVASTATIN CALCIUM
     Dosage: 20 MG TABLET
     Route: 048
  11. ATARAX [Concomitant]
     Active Substance: HYDROXYZINE\HYDROXYZINE HYDROCHLORIDE
     Dosage: 25 MG TABLET
     Route: 048
  12. LASILIX [Suspect]
     Active Substance: FUROSEMIDE
     Route: 065
  13. RABEPRAZOLE SODIUM. [Concomitant]
     Active Substance: RABEPRAZOLE SODIUM
     Route: 065
  14. SEBIPROX [Concomitant]
     Route: 065

REACTIONS (4)
  - Anaemia [Not Recovered/Not Resolved]
  - Ecchymosis [Unknown]
  - International normalised ratio increased [Recovered/Resolved]
  - Melaena [Recovered/Resolved]

NARRATIVE: CASE EVENT DATE: 201512
